FAERS Safety Report 9149273 (Version 1)
Quarter: 2013Q1

REPORT INFORMATION
  Report Type: Spontaneous
  Country: CH (occurrence: CH)
  Receive Date: 20130308
  Receipt Date: 20130308
  Transmission Date: 20140127
  Serious: Yes (Hospitalization)
  Sender: FDA-Public Use
  Company Number: CH-PFIZER INC-2013077667

PATIENT
  Age: 80 Year
  Sex: Female

DRUGS (9)
  1. CORDARONE [Suspect]
     Indication: ATRIAL FIBRILLATION
     Dosage: UNK
     Route: 048
     Dates: start: 20130130, end: 20130203
  2. DIGOXIN [Suspect]
     Indication: ATRIAL FIBRILLATION
     Dosage: UNK
     Route: 042
     Dates: start: 20130130, end: 20130203
  3. SINTROM [Concomitant]
     Dosage: UNK
  4. CINACALCET HYDROCHLORIDE [Concomitant]
     Dosage: UNK
  5. CALCIUM ACETATE [Concomitant]
     Dosage: UNK
  6. RENAGEL [Concomitant]
     Dosage: UNK
  7. SAROTEN RETARD [Concomitant]
     Dosage: UNK
  8. PANTOZOL [Concomitant]
     Dosage: UNK
  9. HALCION [Concomitant]
     Dosage: UNK

REACTIONS (3)
  - Toxicity to various agents [Recovered/Resolved]
  - Atrioventricular block complete [Recovered/Resolved]
  - Dyspnoea [Recovered/Resolved]
